FAERS Safety Report 12841553 (Version 1)
Quarter: 2016Q4

REPORT INFORMATION
  Report Type: Spontaneous
  Country: GB (occurrence: GB)
  Receive Date: 20161012
  Receipt Date: 20161012
  Transmission Date: 20170207
  Serious: Yes (Disabling, Congenital Anomaly)
  Sender: FDA-Public Use
  Company Number: GB-ABBVIE-16P-167-1750728-00

PATIENT
  Sex: Female

DRUGS (1)
  1. SODIUM VALPROATE [Suspect]
     Active Substance: VALPROATE SODIUM
     Indication: MATERNAL EXPOSURE TIMING UNSPECIFIED
     Route: 064

REACTIONS (11)
  - Judgement impaired [Not Recovered/Not Resolved]
  - Congenital uterine anomaly [Not Recovered/Not Resolved]
  - Asocial behaviour [Not Recovered/Not Resolved]
  - Foetal exposure during pregnancy [Unknown]
  - Pupils unequal [Not Recovered/Not Resolved]
  - Increased appetite [Unknown]
  - Developmental delay [Unknown]
  - Mental impairment [Not Recovered/Not Resolved]
  - Urinary tract infection [Not Recovered/Not Resolved]
  - Epiphysiolysis [Recovered/Resolved with Sequelae]
  - Premature baby [Unknown]

NARRATIVE: CASE EVENT DATE: 19980508
